FAERS Safety Report 14617243 (Version 2)
Quarter: 2018Q1

REPORT INFORMATION
  Report Type: Spontaneous
  Country: US (occurrence: US)
  Receive Date: 20180309
  Receipt Date: 20180328
  Transmission Date: 20180509
  Serious: Yes (Hospitalization, Other)
  Sender: FDA-Public Use
  Company Number: US-TORRENT-00005778

PATIENT
  Age: 78 Year
  Sex: Female

DRUGS (1)
  1. ANAGRELIDE HYDROCHLORIDE. [Suspect]
     Active Substance: ANAGRELIDE HYDROCHLORIDE
     Indication: ESSENTIAL THROMBOCYTHAEMIA

REACTIONS (11)
  - Skin haemorrhage [Recovering/Resolving]
  - Syncope [Recovered/Resolved]
  - Sinus arrhythmia [Recovered/Resolved]
  - Craniofacial fracture [Recovering/Resolving]
  - Palpitations [Recovered/Resolved]
  - Supraventricular extrasystoles [Recovered/Resolved]
  - Dizziness [Recovered/Resolved]
  - Contusion [Recovering/Resolving]
  - Ventricular tachyarrhythmia [Recovered/Resolved]
  - Injury [Recovering/Resolving]
  - Electrocardiogram QT prolonged [Recovered/Resolved]
